FAERS Safety Report 6642794-0 (Version None)
Quarter: 2010Q1

REPORT INFORMATION
  Report Type: 
  Country: None (occurrence: None)
  Receive Date: 20100319
  Receipt Date: 20100308
  Transmission Date: 20100710
  Serious: Yes (Hospitalization, Other)
  Sender: FDA-Public Use
  Company Number: US-PFIZER INC-2009276085

PATIENT
  Sex: Male

DRUGS (6)
  1. XANAX [Suspect]
     Dosage: 1MG
     Dates: start: 20010101
  2. LITHIUM CARBONATE [Suspect]
     Dosage: UNK
  3. RISPERDAL [Suspect]
     Dosage: UNK
  4. LUNESTA [Suspect]
  5. ROZEREM [Suspect]
     Dosage: UNK
  6. SEROQUEL [Suspect]
     Dosage: UP TO 200 MG DAILY

REACTIONS (17)
  - AGITATION [None]
  - ANXIETY [None]
  - ASCITES [None]
  - BALANCE DISORDER [None]
  - DEPRESSION [None]
  - DRUG DEPENDENCE [None]
  - HEPATOTOXICITY [None]
  - INCORRECT DOSE ADMINISTERED [None]
  - INJURY [None]
  - INSOMNIA [None]
  - LIVER DISORDER [None]
  - MANIA [None]
  - MEMORY IMPAIRMENT [None]
  - PANIC DISORDER [None]
  - SUICIDAL IDEATION [None]
  - THERAPEUTIC AGENT TOXICITY [None]
  - TREMOR [None]
